FAERS Safety Report 4990834-7 (Version None)
Quarter: 2006Q1

REPORT INFORMATION
  Report Type: 
  Country: None (occurrence: None)
  Receive Date: 20060314
  Receipt Date: 20060209
  Transmission Date: 20060701
  Serious: No
  Sender: FDA-Public Use
  Company Number: 2006-00287

PATIENT
  Age: 53 Year
  Sex: Male
  Weight: 146 kg

DRUGS (9)
  1. VELCADE [Suspect]
     Indication: MULTIPLE MYELOMA
     Dosage: 2.50 MG, IV BOLUS
     Route: 040
  2. PROCRIT [Concomitant]
  3. ZOMETA [Concomitant]
  4. PROTONIX [Concomitant]
  5. VITAMIN D [Concomitant]
  6. OXYCODONE (OXYCODONE) [Concomitant]
  7. INSULIN, REGULAR INSULIN (INSULIN) [Concomitant]
  8. HUMALOG [Concomitant]
  9. SODIUM CHLORIDE [Concomitant]

REACTIONS (1)
  - OEDEMA PERIPHERAL [None]
